FAERS Safety Report 13983912 (Version 2)
Quarter: 2017Q4

REPORT INFORMATION
  Report Type: Spontaneous
  Country: US (occurrence: US)
  Receive Date: 20170918
  Receipt Date: 20171012
  Transmission Date: 20180321
  Serious: Yes (Life-Threatening, Hospitalization, Other)
  Sender: FDA-Public Use
  Company Number: US-BAYER-2017-172783

PATIENT
  Age: 32 Year
  Sex: Female
  Weight: 72.11 kg

DRUGS (2)
  1. MIRENA [Suspect]
     Active Substance: LEVONORGESTREL
     Indication: CONTRACEPTION
     Dosage: UNK
     Route: 015
     Dates: end: 20170831
  2. MIRENA [Suspect]
     Active Substance: LEVONORGESTREL
     Indication: CONTRACEPTION
     Dosage: 20 MCG/24HR, CONT
     Route: 015
     Dates: start: 20170831, end: 20170902

REACTIONS (27)
  - Myalgia [Recovered/Resolved]
  - Tachycardia [Recovered/Resolved]
  - Abdominal discomfort [Recovered/Resolved]
  - Dyspnoea [Recovered/Resolved]
  - Headache [Recovered/Resolved]
  - Drug hypersensitivity [None]
  - Throat tightness [Recovered/Resolved]
  - Haemolysis [Recovered/Resolved]
  - Streptococcal sepsis [Recovered/Resolved]
  - Vomiting [Recovered/Resolved]
  - Pelvic pain [Recovered/Resolved]
  - Abdominal pain [Recovered/Resolved]
  - Systemic inflammatory response syndrome [Recovered/Resolved]
  - Neck pain [Recovered/Resolved]
  - Hypokalaemia [Recovered/Resolved]
  - Septic shock [Recovered/Resolved]
  - Endometritis [Recovered/Resolved]
  - Pyrexia [Recovered/Resolved]
  - Device issue [Recovered/Resolved]
  - Back pain [Recovered/Resolved]
  - Pulmonary oedema [Recovered/Resolved]
  - Hypomagnesaemia [Recovered/Resolved]
  - Chest discomfort [Recovered/Resolved]
  - Atelectasis [Recovered/Resolved]
  - Chest pain [Recovered/Resolved]
  - Nausea [Recovered/Resolved]
  - Procedural haemorrhage [Recovered/Resolved]

NARRATIVE: CASE EVENT DATE: 20170831
